FAERS Safety Report 8550343-5 (Version None)
Quarter: 2012Q3

REPORT INFORMATION
  Report Type: 
  Country: None (occurrence: None)
  Receive Date: 20120730
  Receipt Date: 20120723
  Transmission Date: 20120928
  Serious: Yes (Other)
  Sender: FDA-Public Use
  Company Number: US-PFIZER INC-2012178324

PATIENT
  Sex: Female
  Weight: 83.9 kg

DRUGS (2)
  1. DILANTIN-125 [Suspect]
     Indication: CONVULSION
     Dosage: UNK, 3X/DAY
     Route: 048
  2. NEURONTIN [Suspect]
     Dosage: 800 MG, 1X/DAY
     Route: 048

REACTIONS (10)
  - BLOOD IRON DECREASED [None]
  - SOMNOLENCE [None]
  - GINGIVAL SWELLING [None]
  - BLOOD POTASSIUM DECREASED [None]
  - RASH [None]
  - SKIN LESION [None]
  - IMPAIRED WORK ABILITY [None]
  - DRUG HYPERSENSITIVITY [None]
  - JOINT SWELLING [None]
  - SCAB [None]
